FAERS Safety Report 7279306-7 (Version None)
Quarter: 2011Q1

REPORT INFORMATION
  Report Type: 
  Country: None (occurrence: None)
  Receive Date: 20110207
  Receipt Date: 20110127
  Transmission Date: 20110831
  Serious: Yes (Other)
  Sender: FDA-Public Use
  Company Number: DE-RB-021512-11

PATIENT
  Sex: Male

DRUGS (3)
  1. SUBUTEX [Suspect]
     Dosage: DOSING DETAILS UNKNOWN.
     Route: 065
  2. SUBOXONE [Suspect]
     Indication: DRUG DEPENDENCE
     Dosage: DOSING DETAILS UNKNOWN
     Route: 065
  3. SUBUTEX [Suspect]
     Indication: DRUG DEPENDENCE
     Dosage: DOSING DETAILS UNKNOWN.
     Route: 065

REACTIONS (2)
  - PARANOIA [None]
  - HALLUCINATION [None]
